FAERS Safety Report 8889931 (Version 2)
Quarter: 2012Q4

REPORT INFORMATION
  Report Type: 
  Country: JP (occurrence: JP)
  Receive Date: 20121107
  Receipt Date: 20121210
  Transmission Date: 20130627
  Serious: Yes (Other)
  Sender: FDA-Public Use
  Company Number: JP-009507513-1211JPN001086

PATIENT
  Age: 57 Year
  Sex: Male

DRUGS (5)
  1. JANUVIA TABLETS 50MG [Suspect]
     Indication: DIABETES MELLITUS
     Dosage: 50 mg, qd
     Route: 048
     Dates: start: 20120322, end: 20120517
  2. LIVALO [Concomitant]
     Indication: HYPERLIPIDAEMIA
     Route: 065
  3. AMLODIPINE [Concomitant]
     Indication: HYPERTENSION
     Route: 065
  4. MAINTATE [Concomitant]
     Indication: CARDIAC FAILURE
  5. BAYASPIRIN [Concomitant]
     Route: 065

REACTIONS (1)
  - Eyelid ptosis [Recovered/Resolved]
